FAERS Safety Report 9290928 (Version 1)
Quarter: 2013Q2

REPORT INFORMATION
  Report Type: Spontaneous
  Country: FR (occurrence: FR)
  Receive Date: 20130515
  Receipt Date: 20130515
  Transmission Date: 20140414
  Serious: Yes (Other)
  Sender: FDA-Public Use
  Company Number: FR-ASTRAZENECA-2013SE31653

PATIENT
  Age: 24181 Day
  Sex: Female

DRUGS (1)
  1. ARIMIDEX [Suspect]
     Route: 048
     Dates: start: 20120709, end: 20120803

REACTIONS (5)
  - Suicidal ideation [Recovered/Resolved]
  - Migraine [Recovered/Resolved]
  - Rash [Recovered/Resolved]
  - Hallucination, visual [Recovered/Resolved]
  - Negative thoughts [Recovered/Resolved]
